FAERS Safety Report 16844458 (Version 1)
Quarter: 2019Q3

REPORT INFORMATION
  Report Type: Spontaneous
  Country: US (occurrence: US)
  Receive Date: 20190924
  Receipt Date: 20190924
  Transmission Date: 20191005
  Serious: Yes (Hospitalization)
  Sender: FDA-Public Use
  Company Number: US-CHURCH + DWIGHT CO., INC.-2074825

PATIENT
  Age: 83 Year
  Sex: Female

DRUGS (1)
  1. ORAJEL MAXIMUM STRENGTH (BENZOCAINE) [Suspect]
     Active Substance: BENZOCAINE
     Indication: ORAL PAIN
     Route: 004
     Dates: start: 20190828, end: 20190828

REACTIONS (2)
  - Swelling [Unknown]
  - Hypoaesthesia oral [Recovering/Resolving]

NARRATIVE: CASE EVENT DATE: 20190828
